FAERS Safety Report 7047450-5 (Version None)
Quarter: 2010Q4

REPORT INFORMATION
  Report Type: 
  Country: None (occurrence: None)
  Receive Date: 20101007
  Receipt Date: 20100922
  Transmission Date: 20110411
  Serious: Yes (Other)
  Sender: FDA-Public Use
  Company Number: GER/SPN/10/0016196

PATIENT
  Age: 52 Year
  Sex: Male

DRUGS (1)
  1. SERTRALINE HYDROCHLORIDE [Suspect]
     Indication: ANTIDEPRESSANT THERAPY

REACTIONS (2)
  - DIFFUSE ALVEOLAR DAMAGE [None]
  - RESPIRATORY FAILURE [None]
